FAERS Safety Report 5696008-9 (Version None)
Quarter: 2008Q2

REPORT INFORMATION
  Report Type: 
  Country: None (occurrence: None)
  Receive Date: 20080407
  Receipt Date: 20080328
  Transmission Date: 20081010
  Serious: Yes (Death, Hospitalization)
  Sender: FDA-Public Use
  Company Number: BE-MERCK-0801BEL00012

PATIENT
  Age: 5 Year
  Sex: Male
  Weight: 19 kg

DRUGS (22)
  1. CANCIDAS [Suspect]
     Indication: EVIDENCE BASED TREATMENT
     Route: 041
     Dates: start: 20080204, end: 20080204
  2. CANCIDAS [Suspect]
     Route: 041
     Dates: start: 20080205, end: 20080212
  3. CANCIDAS [Suspect]
     Route: 041
     Dates: start: 20071230, end: 20071230
  4. CANCIDAS [Suspect]
     Route: 041
     Dates: start: 20071231, end: 20080113
  5. CANCIDAS [Suspect]
     Route: 041
     Dates: start: 20080322, end: 20080322
  6. CANCIDAS [Suspect]
     Route: 041
     Dates: start: 20080323, end: 20080326
  7. CYCLOSPORINE [Concomitant]
     Indication: TRANSPLANT
     Route: 065
     Dates: start: 20071230, end: 20080114
  8. CYCLOSPORINE [Concomitant]
     Route: 065
     Dates: start: 20080204, end: 20080212
  9. CYCLOSPORINE [Concomitant]
     Route: 065
     Dates: start: 20080326, end: 20080326
  10. VANCOMYCIN [Concomitant]
     Indication: PYREXIA
     Route: 041
     Dates: start: 20071212, end: 20080113
  11. VANCOMYCIN [Concomitant]
     Route: 041
     Dates: start: 20080204, end: 20080211
  12. VANCOMYCIN [Concomitant]
     Route: 041
     Dates: start: 20080320, end: 20080326
  13. PIPERACILLIN SODIUM AND TAZOBACTAM SODIUM [Concomitant]
     Indication: PYREXIA
     Route: 051
     Dates: start: 20071212, end: 20080113
  14. PIPERACILLIN SODIUM AND TAZOBACTAM SODIUM [Concomitant]
     Route: 051
     Dates: start: 20080204, end: 20080211
  15. AMIKACIN [Concomitant]
     Indication: PYREXIA
     Route: 051
     Dates: start: 20071212, end: 20080113
  16. AMIKACIN [Concomitant]
     Route: 051
     Dates: start: 20080204, end: 20080211
  17. CLINDAMYCIN [Concomitant]
     Indication: PYREXIA
     Route: 065
     Dates: start: 20071222, end: 20080203
  18. CLINDAMYCIN [Concomitant]
     Route: 065
  19. CORTICOSTEROIDS (UNSPECIFIED) [Concomitant]
     Route: 065
  20. MEROPENEM [Concomitant]
     Indication: PYREXIA
     Route: 042
     Dates: start: 20080320, end: 20080326
  21. ITRACONAZOLE [Concomitant]
     Route: 048
     Dates: start: 20071201, end: 20080321
  22. ITRACONAZOLE [Concomitant]
     Route: 048

REACTIONS (4)
  - ACUTE GRAFT VERSUS HOST DISEASE [None]
  - INTENTIONAL DRUG MISUSE [None]
  - NO ADVERSE EVENT [None]
  - TRANSAMINASES INCREASED [None]
